FAERS Safety Report 11103465 (Version 1)
Quarter: 2015Q2

REPORT INFORMATION
  Report Type: Spontaneous
  Country: US (occurrence: None)
  Receive Date: 20150508
  Receipt Date: 20150508
  Transmission Date: 20150821
  Serious: No
  Sender: FDA-Public Use
  Company Number: None

PATIENT
  Age: 66 Year
  Sex: Male
  Weight: 84.82 kg

DRUGS (7)
  1. TEMAZEPAM. [Concomitant]
     Active Substance: TEMAZEPAM
  2. VENLAFAXINE [Concomitant]
     Active Substance: VENLAFAXINE HYDROCHLORIDE
  3. VA ISSUE MULTIPLE VITAMIN [Concomitant]
  4. ATORVASTATIN CALCIUM TABS, 20MG [Suspect]
     Active Substance: ATORVASTATIN CALCIUM
     Indication: BLOOD CHOLESTEROL INCREASED
     Dosage: 1 PILL
     Route: 048
     Dates: start: 201405, end: 20150428
  5. VALIUM [Concomitant]
     Active Substance: DIAZEPAM
  6. LISNOPRIL 15 MG [Concomitant]
     Active Substance: LISINOPRIL
  7. PANTOPRAZOLE NA [Concomitant]

REACTIONS (10)
  - Abdominal distension [None]
  - Vomiting [None]
  - Hyperhidrosis [None]
  - Skin discolouration [None]
  - Decreased appetite [None]
  - Dehydration [None]
  - Headache [None]
  - Muscle spasms [None]
  - Diarrhoea [None]
  - Asthenia [None]

NARRATIVE: CASE EVENT DATE: 201504
